FAERS Safety Report 13082585 (Version 2)
Quarter: 2017Q2

REPORT INFORMATION
  Report Type: Spontaneous
  Country: US (occurrence: US)
  Receive Date: 20170103
  Receipt Date: 20170411
  Transmission Date: 20170830
  Serious: No
  Sender: FDA-Public Use
  Company Number: US-ASTRAZENECA-2016SF36814

PATIENT
  Age: 70 Year
  Sex: Female
  Weight: 63.5 kg

DRUGS (1)
  1. SYMBICORT [Suspect]
     Active Substance: BUDESONIDE\FORMOTEROL FUMARATE DIHYDRATE
     Indication: COUGH
     Dosage: DOSE: 160 MCG /4.5 MCG , TWO PUFFS, FREQUENCY:TWO TIMES A DAY
     Route: 055
     Dates: start: 2016, end: 20161221

REACTIONS (5)
  - Device failure [Unknown]
  - Influenza [Unknown]
  - Intentional device misuse [Unknown]
  - Vomiting [Unknown]
  - Intentional product misuse [Unknown]

NARRATIVE: CASE EVENT DATE: 2016
